FAERS Safety Report 9428971 (Version 2)
Quarter: 2013Q3

REPORT INFORMATION
  Report Type: Spontaneous
  Country: US (occurrence: US)
  Receive Date: 20130730
  Receipt Date: 20130801
  Transmission Date: 20140515
  Serious: Yes (Other)
  Sender: FDA-Public Use
  Company Number: US-PFIZER INC-2013217385

PATIENT
  Age: 22 Year
  Sex: Male
  Weight: 70.75 kg

DRUGS (4)
  1. PROTONIX [Suspect]
     Indication: GASTRIC DISORDER
     Dosage: UNK
  2. PROTONIX [Suspect]
     Dosage: UNK
     Dates: start: 201307
  3. HYDROCODONE [Concomitant]
     Indication: PAIN
     Dosage: UNK
  4. SOMA [Concomitant]
     Indication: PAIN
     Dosage: UNK

REACTIONS (4)
  - Gastrointestinal disorder [Unknown]
  - Diarrhoea [Unknown]
  - White blood cell count decreased [Unknown]
  - Drug screen positive [Unknown]
